FAERS Safety Report 9388185 (Version 3)
Quarter: 2013Q3

REPORT INFORMATION
  Report Type: Spontaneous
  Country: US (occurrence: None)
  Receive Date: 20130703
  Receipt Date: 20130819
  Transmission Date: 20140515
  Serious: Yes (Other)
  Sender: FDA-Public Use
  Company Number: 2013P1010693

PATIENT
  Age: 18 Year
  Sex: Male

DRUGS (2)
  1. MYORISAN [Suspect]
     Indication: ACNE
     Route: 048
     Dates: start: 20130405, end: 20130513
  2. RITALIN [Concomitant]

REACTIONS (6)
  - Mood altered [None]
  - Depression [None]
  - Stress [None]
  - Autophobia [None]
  - Disturbance in attention [None]
  - Wrong technique in drug usage process [None]
